FAERS Safety Report 5443108-4 (Version None)
Quarter: 2007Q3

REPORT INFORMATION
  Report Type: 
  Country: None (occurrence: None)
  Receive Date: 20070905
  Receipt Date: 20070827
  Transmission Date: 20080115
  Serious: Yes (Other)
  Sender: FDA-Public Use
  Company Number: GB-NOVOPROD-266995

PATIENT

DRUGS (1)
  1. HUMAN MIXTARD 30 HM(GE) [Suspect]
     Indication: DIABETES MELLITUS
     Dosage: 8 + 52 IU, QD

REACTIONS (4)
  - BLOOD GLUCOSE DECREASED [None]
  - CHEST PAIN [None]
  - DYSPNOEA [None]
  - NAUSEA [None]
